FAERS Safety Report 9798455 (Version 1)
Quarter: 2013Q4

REPORT INFORMATION
  Report Type: Spontaneous
  Country: AU (occurrence: None)
  Receive Date: 20131230
  Receipt Date: 20131230
  Transmission Date: 20140711
  Serious: Yes (Other)
  Sender: FDA-Public Use
  Company Number: 2013000369

PATIENT
  Age: 73 Year
  Sex: Male

DRUGS (9)
  1. ACEON (PERINDOPRIL ERBUMINE) TABLET [Suspect]
     Indication: PRODUCT USED FOR UNKNOWN INDICATION
  2. ALDACTONE (SPIRONOLACTONE) [Concomitant]
  3. ARATAC (AMIODARONE HYDROCHLORIDE) [Concomitant]
  4. COVERSYL (PERINDOPRIL ERBUMINE) [Concomitant]
  5. CRESTOR (ROSUVASTATIN CALCIUM) [Concomitant]
  6. DILATREND (CARVEDIOL) [Concomitant]
  7. LANOXIN (DIGOXIN) [Concomitant]
  8. LASILIX (FUROSEMIDE) [Concomitant]
  9. MAREVAN (WARFARIN SODIUM) [Concomitant]

REACTIONS (2)
  - Therapeutic response unexpected [None]
  - Ventricular tachycardia [None]
